FAERS Safety Report 26126952 (Version 1)
Quarter: 2025Q4

REPORT INFORMATION
  Report Type: Spontaneous
  Country: US (occurrence: US)
  Receive Date: 20251205
  Receipt Date: 20251205
  Transmission Date: 20260117
  Serious: Yes (Hospitalization)
  Sender: RIGEL PHARMACEUTICALS
  Company Number: US-RIGEL PHARMACEUTICALS, INC-20251100167

PATIENT
  Sex: Female

DRUGS (1)
  1. TAVALISSE [Suspect]
     Active Substance: FOSTAMATINIB
     Indication: Immune thrombocytopenia
     Dosage: 100 MG, BID
     Route: 048
     Dates: start: 20231001

REACTIONS (15)
  - Hospitalisation [Unknown]
  - Arthralgia [Unknown]
  - Platelet count decreased [Unknown]
  - Blood glucose increased [Unknown]
  - Vomiting [Unknown]
  - Malaise [Unknown]
  - Insomnia [Unknown]
  - Depressed mood [Unknown]
  - Mobility decreased [Unknown]
  - General physical health deterioration [Unknown]
  - Pain [Unknown]
  - Loss of personal independence in daily activities [Unknown]
  - Emotional disorder [Unknown]
  - Product dose omission issue [Unknown]
  - Drug ineffective [Unknown]
